FAERS Safety Report 7960338-8 (Version None)
Quarter: 2011Q4

REPORT INFORMATION
  Report Type: 
  Country: None (occurrence: None)
  Receive Date: 20111206
  Receipt Date: 20111202
  Transmission Date: 20120403
  Serious: Yes (Other)
  Sender: FDA-Public Use
  Company Number: US-AMGEN-USASP2011029687

PATIENT
  Sex: Female
  Weight: 73.016 kg

DRUGS (1)
  1. NPLATE [Suspect]
     Indication: IDIOPATHIC THROMBOCYTOPENIC PURPURA
     Dosage: 80 MUG, UNK
     Dates: start: 20100621, end: 20110509

REACTIONS (2)
  - SPLENECTOMY [None]
  - THERAPEUTIC RESPONSE DECREASED [None]
